FAERS Safety Report 4826093-5 (Version None)
Quarter: 2005Q4

REPORT INFORMATION
  Report Type: 
  Country: None (occurrence: None)
  Receive Date: 20051014
  Receipt Date: 20050707
  Transmission Date: 20060501
  Serious: No
  Sender: FDA-Public Use
  Company Number: 2005SP001797

PATIENT
  Age: 52 Year
  Sex: Female
  Weight: 95.2554 kg

DRUGS (5)
  1. LUNESTA [Suspect]
     Indication: INSOMNIA
     Dosage: 2 MG; PRN; ORAL
     Route: 048
     Dates: start: 20050617
  2. AMBIEN [Concomitant]
  3. CALCIUM GLUCONATE [Concomitant]
  4. MULTIVITAMIN [Concomitant]
  5. ASPIRIN [Concomitant]

REACTIONS (1)
  - DYSGEUSIA [None]
